FAERS Safety Report 17913855 (Version 4)
Quarter: 2021Q3

REPORT INFORMATION
  Report Type: Report from Study
  Country: None (occurrence: US)
  Receive Date: 20200618
  Receipt Date: 20210908
  Transmission Date: 20211014
  Serious: Yes (Hospitalization, Other)
  Sender: FDA-Public Use
  Company Number: US-ABBVIE-20K-163-3448564-00

PATIENT
  Age: 39 Year
  Sex: Male

DRUGS (3)
  1. HUMIRA [Suspect]
     Active Substance: ADALIMUMAB
     Indication: CROHN^S DISEASE
     Dosage: DAY 1
     Route: 058
     Dates: start: 20200610, end: 20200610
  2. HUMIRA [Suspect]
     Active Substance: ADALIMUMAB
     Dosage: DAY 15
     Route: 058
     Dates: start: 20200624, end: 20200624
  3. HUMIRA [Suspect]
     Active Substance: ADALIMUMAB
     Indication: CROHN^S DISEASE
     Dosage: DAY 29
     Route: 058
     Dates: start: 20200708

REACTIONS (22)
  - Diarrhoea [Recovering/Resolving]
  - Fatigue [Recovered/Resolved]
  - Impaired quality of life [Unknown]
  - Decreased appetite [Unknown]
  - Asthenia [Unknown]
  - Cholecystectomy [Unknown]
  - Haematochezia [Unknown]
  - Nausea [Unknown]
  - Headache [Recovered/Resolved]
  - Injection site pain [Recovered/Resolved]
  - Therapeutic response shortened [Unknown]
  - Condition aggravated [Unknown]
  - Constipation [Unknown]
  - Somnolence [Recovered/Resolved]
  - Procedural pain [Unknown]
  - Nasal congestion [Unknown]
  - Anxiety [Unknown]
  - Insomnia [Unknown]
  - Hypotension [Unknown]
  - Depressed mood [Unknown]
  - Vomiting [Unknown]
  - Abdominal pain [Recovered/Resolved]

NARRATIVE: CASE EVENT DATE: 2020
